APPROVED DRUG PRODUCT: MILI
Active Ingredient: ETHINYL ESTRADIOL; NORGESTIMATE
Strength: 0.035MG;0.25MG
Dosage Form/Route: TABLET;ORAL-28
Application: A205449 | Product #001 | TE Code: AB
Applicant: AUROBINDO PHARMA LTD
Approved: Jul 7, 2016 | RLD: No | RS: No | Type: RX